FAERS Safety Report 10750767 (Version 3)
Quarter: 2016Q1

REPORT INFORMATION
  Report Type: Report from Study
  Country: NO (occurrence: NO)
  Receive Date: 20150130
  Receipt Date: 20160208
  Transmission Date: 20160525
  Serious: Yes (Death, Other)
  Sender: FDA-Public Use
  Company Number: NO-ROCHE-1526944

PATIENT

DRUGS (1)
  1. RANIBIZUMAB [Suspect]
     Active Substance: RANIBIZUMAB
     Indication: NEOVASCULAR AGE-RELATED MACULAR DEGENERATION
     Route: 050

REACTIONS (19)
  - Death [Fatal]
  - Hypertension [Unknown]
  - Renal disorder [Unknown]
  - Urinary tract disorder [Unknown]
  - Musculoskeletal disorder [Unknown]
  - Neoplasm [Unknown]
  - Myocardial infarction [Unknown]
  - Respiratory disorder [Unknown]
  - Cerebrovascular accident [Unknown]
  - Infection [Unknown]
  - Mediastinal disorder [Unknown]
  - Gastrointestinal disorder [Unknown]
  - Angiopathy [Unknown]
  - Connective tissue disorder [Unknown]
  - Nervous system disorder [Unknown]
  - Embolism venous [Unknown]
  - Arterial thrombosis [Fatal]
  - Cardiac disorder [Unknown]
  - Ill-defined disorder [Unknown]
